FAERS Safety Report 14583045 (Version 1)
Quarter: 2018Q1

REPORT INFORMATION
  Report Type: Spontaneous
  Country: FR (occurrence: FR)
  Receive Date: 20180228
  Receipt Date: 20180228
  Transmission Date: 20180509
  Serious: Yes (Death, Hospitalization)
  Sender: FDA-Public Use
  Company Number: None

PATIENT
  Age: 83 Year
  Sex: Female
  Weight: 64 kg

DRUGS (7)
  1. CISPLATIN. [Suspect]
     Active Substance: CISPLATIN
     Indication: CHOLANGIOCARCINOMA
     Route: 041
     Dates: start: 20171114, end: 20171121
  2. FUROSEMIDE. [Concomitant]
     Active Substance: FUROSEMIDE
  3. GEMCITABINE [Suspect]
     Active Substance: GEMCITABINE\GEMCITABINE HYDROCHLORIDE
     Indication: CHOLANGIOCARCINOMA
     Route: 041
     Dates: start: 20171114, end: 20171121
  4. SIR-SPHERES MICROSPHERES (MAPPING PROCEDURE) [Concomitant]
     Active Substance: DEVICE
     Dates: end: 20170822
  5. SIR-SPHERES MICROSPHERES (MEDICAL DEVICE) [Suspect]
     Active Substance: DEVICE
     Indication: CHOLANGIOCARCINOMA
     Dates: end: 20170830
  6. SIR-SPHERES MICROSPHERES (IMPLANT PROCEDURE) [Suspect]
     Active Substance: DEVICE
     Indication: CHOLANGIOCARCINOMA
     Dates: end: 20170830
  7. METFORMINE [Concomitant]
     Active Substance: METFORMIN HYDROCHLORIDE

REACTIONS (16)
  - Stomatitis [None]
  - Erythema [None]
  - Abdominal pain [None]
  - Mouth haemorrhage [None]
  - Constipation [None]
  - Vomiting [None]
  - Erysipelas [None]
  - Acute kidney injury [None]
  - Hepatic failure [None]
  - Dyspnoea [None]
  - Ascites [None]
  - Anaemia [None]
  - Platelet count decreased [None]
  - Encephalopathy [None]
  - Pain [None]
  - Blood creatinine increased [None]

NARRATIVE: CASE EVENT DATE: 20171219
